FAERS Safety Report 10516905 (Version 2)
Quarter: 2014Q4

REPORT INFORMATION
  Report Type: Spontaneous
  Country: US (occurrence: US)
  Receive Date: 20141014
  Receipt Date: 20141031
  Transmission Date: 20150528
  Serious: No
  Sender: FDA-Public Use
  Company Number: US-BAYER-2014-148036

PATIENT
  Age: 28 Year
  Sex: Female

DRUGS (2)
  1. BEYAZ [Suspect]
     Active Substance: DROSPIRENONE\ETHINYL ESTRADIOL\LEVOMEFOLATE CALCIUM
     Indication: ACNE
     Dosage: UNK
     Route: 048
     Dates: start: 201304
  2. BEYAZ [Suspect]
     Active Substance: DROSPIRENONE\ETHINYL ESTRADIOL\LEVOMEFOLATE CALCIUM
     Indication: CONTRACEPTION

REACTIONS (3)
  - Extra dose administered [None]
  - Drug dose omission [None]
  - Withdrawal bleed [None]

NARRATIVE: CASE EVENT DATE: 2014
